FAERS Safety Report 8337282-X (Version None)
Quarter: 2012Q2

REPORT INFORMATION
  Report Type: 
  Country: None (occurrence: None)
  Receive Date: 20120504
  Receipt Date: 20120430
  Transmission Date: 20120825
  Serious: Yes (Other)
  Sender: FDA-Public Use
  Company Number: US-PERRIGO-12US003307

PATIENT
  Sex: Male
  Weight: 18.141 kg

DRUGS (2)
  1. CHILDREN'S IBUPROFEN [Suspect]
     Indication: HYPERSENSITIVITY
     Dosage: 150 MG, SINGLE
     Route: 048
     Dates: start: 20120330, end: 20120330
  2. CHILDREN'S IBUPROFEN [Suspect]
     Indication: COUGH
     Dosage: 150 MG, SINGLE
     Route: 048
     Dates: start: 20120413, end: 20120413

REACTIONS (7)
  - OCULAR HYPERAEMIA [None]
  - OFF LABEL USE [None]
  - RASH [None]
  - EYE SWELLING [None]
  - HYPERSENSITIVITY [None]
  - ERYTHEMA [None]
  - DYSPNOEA [None]
